FAERS Safety Report 8190318-1 (Version None)
Quarter: 2012Q1

REPORT INFORMATION
  Report Type: 
  Country: None (occurrence: None)
  Receive Date: 20120307
  Receipt Date: 20120305
  Transmission Date: 20120608
  Serious: Yes (Other)
  Sender: FDA-Public Use
  Company Number: US-BAYER-2011-051468

PATIENT
  Age: 59 Year
  Sex: Female

DRUGS (10)
  1. GADOLINIUM IN UNSPECIFIED DRUG [Suspect]
     Indication: NUCLEAR MAGNETIC RESONANCE IMAGING
     Dosage: UNK UNK, ONCE
     Dates: start: 19980110, end: 19980110
  2. ACETAMINOPHEN [Concomitant]
  3. OMNISCAN [Suspect]
     Indication: NUCLEAR MAGNETIC RESONANCE IMAGING
  4. OPTIMARK [Suspect]
     Indication: NUCLEAR MAGNETIC RESONANCE IMAGING
  5. GADOLINIUM IN UNSPECIFIED DRUG [Suspect]
     Indication: NUCLEAR MAGNETIC RESONANCE IMAGING BRAIN
     Dosage: UNK, ONCE
     Dates: start: 20070822, end: 20070822
  6. VERAPAMIL [Concomitant]
  7. LASIX [Concomitant]
  8. MAGNEVIST [Suspect]
     Indication: NUCLEAR MAGNETIC RESONANCE IMAGING
  9. LOPID [Concomitant]
  10. PREMARIN [Concomitant]

REACTIONS (17)
  - PAIN OF SKIN [None]
  - OEDEMA [None]
  - GAIT DISTURBANCE [None]
  - NEPHROGENIC SYSTEMIC FIBROSIS [None]
  - DEFORMITY [None]
  - SCAR [None]
  - MOBILITY DECREASED [None]
  - PAIN [None]
  - EMOTIONAL DISTRESS [None]
  - JOINT STIFFNESS [None]
  - SWELLING [None]
  - PAIN IN EXTREMITY [None]
  - SKIN TIGHTNESS [None]
  - ANHEDONIA [None]
  - OEDEMA PERIPHERAL [None]
  - SKIN INDURATION [None]
  - ERYTHEMA [None]
